FAERS Safety Report 16702449 (Version 7)
Quarter: 2019Q4

REPORT INFORMATION
  Report Type: Spontaneous
  Country: US (occurrence: US)
  Receive Date: 20190814
  Receipt Date: 20191015
  Transmission Date: 20200122
  Serious: No
  Sender: FDA-Public Use
  Company Number: US-PFIZER INC-2019345258

PATIENT
  Age: 71 Year
  Sex: Female
  Weight: 59 kg

DRUGS (2)
  1. EUCRISA [Suspect]
     Active Substance: CRISABOROLE
     Indication: PERIORBITAL OEDEMA
     Dosage: UNK, ONCE DAILY (ONE TIME A DAY)
  2. EUCRISA [Suspect]
     Active Substance: CRISABOROLE
     Dosage: 60 G, UNK (270)
     Dates: start: 201901

REACTIONS (6)
  - Drug ineffective for unapproved indication [Unknown]
  - Poor quality product administered [Unknown]
  - Off label use [Unknown]
  - Eye swelling [Unknown]
  - Product physical consistency issue [Unknown]
  - Application site pain [Unknown]

NARRATIVE: CASE EVENT DATE: 201901
